FAERS Safety Report 8251433-7 (Version None)
Quarter: 2012Q1

REPORT INFORMATION
  Report Type: 
  Country: None (occurrence: None)
  Receive Date: 20120321
  Receipt Date: 20090615
  Transmission Date: 20120608
  Serious: Yes (Other)
  Sender: FDA-Public Use
  Company Number: 2011029759

PATIENT
  Sex: Female

DRUGS (2)
  1. RHOPHYLAC [Suspect]
     Indication: RHESUS INCOMPATIBILITY
     Dosage: , 300 IU QD
     Dates: start: 20090326, end: 20090326
  2. RHOPHYLAC [Suspect]
     Indication: RHESUS INCOMPATIBILITY
     Dosage: , 300 IU QD
     Dates: start: 20090604, end: 20090604

REACTIONS (2)
  - RHESUS ANTIBODIES POSITIVE [None]
  - DRUG INEFFECTIVE [None]
